FAERS Safety Report 10497801 (Version 4)
Quarter: 2014Q4

REPORT INFORMATION
  Report Type: Report from Study
  Country: CA (occurrence: CA)
  Receive Date: 20141006
  Receipt Date: 20141202
  Transmission Date: 20150528
  Serious: Yes (Hospitalization)
  Sender: FDA-Public Use
  Company Number: CA-PFIZER INC-2014264976

PATIENT
  Age: 75 Year
  Sex: Male
  Weight: 82 kg

DRUGS (10)
  1. HYDROMORPHONE [Concomitant]
     Active Substance: HYDROMORPHONE
     Indication: PAIN
     Dosage: 3 MG,EVERY 2-6H AS NEEDED
     Route: 048
     Dates: start: 20140822
  2. SLOW MAGNESIUM [Concomitant]
     Indication: HYPOMAGNESAEMIA
     Dosage: 1 UNK, 2X/DAY
     Route: 048
     Dates: start: 20140829
  3. METOCLOPRAMIDE. [Concomitant]
     Active Substance: METOCLOPRAMIDE
     Indication: NAUSEA
     Dosage: 10 MG, 4X/DAY (EVERY 6H)
     Route: 048
     Dates: start: 20140822
  4. TRAMCET [Concomitant]
     Active Substance: ACETAMINOPHEN\TRAMADOL
     Indication: PAIN
     Dosage: 1-2 TAB, EVERY 4-6 HOURS, AS NEEDED
     Route: 048
     Dates: start: 20140829
  5. TECTA [Concomitant]
     Active Substance: PANTOPRAZOLE MAGNESIUM
     Indication: DYSPEPSIA
     Dosage: 40 MG, 1X/DAY
     Route: 048
     Dates: start: 201207
  6. OROGEL [Concomitant]
     Indication: MUCOSAL INFLAMMATION
     Dosage: 3-4 TIMES A DAY
     Route: 061
     Dates: start: 20140822
  7. ELOCON LOTION [Concomitant]
     Indication: RASH
     Dosage: UNK, AS NEEDED
     Route: 061
     Dates: start: 20140829
  8. MAGIC MOUTHWASH [Concomitant]
     Active Substance: DIPHENHYDRAMINE HYDROCHLORIDE\LIDOCAINE HYDROCHLORIDE\NYSTATIN
     Indication: MUCOSAL INFLAMMATION
     Dosage: UNK, 4X/DAY
     Route: 048
     Dates: start: 20140813
  9. SUNITINIB MALATE [Suspect]
     Active Substance: SUNITINIB MALATE
     Indication: METASTATIC RENAL CELL CARCINOMA
     Dosage: 50 MG, CYCLIC, 28 DAYS ON AND 14 DAYS OFF (CYCLE 1); 14 DAYS ON AND 7 DAYS OFF (CYCLE 2)
     Route: 048
     Dates: start: 20140725, end: 20140917
  10. HYDROCHLOROTHIAZIDE. [Concomitant]
     Active Substance: HYDROCHLOROTHIAZIDE
     Indication: OEDEMA PERIPHERAL
     Dosage: 25 MG, 1X/DAY
     Route: 048
     Dates: start: 20140829

REACTIONS (1)
  - Confusional state [Recovered/Resolved]

NARRATIVE: CASE EVENT DATE: 20140922
